FAERS Safety Report 8304188-1 (Version None)
Quarter: 2012Q2

REPORT INFORMATION
  Report Type: 
  Country: None (occurrence: None)
  Receive Date: 20120423
  Receipt Date: 20120416
  Transmission Date: 20120825
  Serious: Yes (Hospitalization)
  Sender: FDA-Public Use
  Company Number: DE-UCBSA-011260

PATIENT
  Sex: Female
  Weight: 80 kg

DRUGS (6)
  1. CERTOLIZUMAB PEGOL [Suspect]
     Indication: RHEUMATOID ARTHRITIS
     Dosage: ONCE
     Route: 058
     Dates: start: 20100412, end: 20100412
  2. IBUPROFEN [Concomitant]
     Indication: RHEUMATOID ARTHRITIS
     Dates: start: 19930101
  3. DECORTINE [Concomitant]
     Indication: RHEUMATOID ARTHRITIS
     Dates: start: 19930101
  4. CALCIUM CARBONATE [Concomitant]
     Indication: OSTEOPOROSIS
     Dates: start: 19930101
  5. PANTOZOLE [Concomitant]
     Indication: GASTROOESOPHAGEAL REFLUX DISEASE
  6. PREDNISOLONE [Concomitant]
     Indication: RHEUMATOID ARTHRITIS
     Dates: start: 19930101

REACTIONS (2)
  - SYNOVIAL RUPTURE [None]
  - RHEUMATOID ARTHRITIS [None]
